FAERS Safety Report 8445981-4 (Version None)
Quarter: 2012Q2

REPORT INFORMATION
  Report Type: 
  Country: None (occurrence: None)
  Receive Date: 20120618
  Receipt Date: 20120612
  Transmission Date: 20120825
  Serious: No
  Sender: FDA-Public Use
  Company Number: US-PFIZER INC-2012142233

PATIENT
  Sex: Female
  Weight: 53.061 kg

DRUGS (6)
  1. NORVASC [Concomitant]
     Indication: ATRIOVENTRICULAR BLOCK
     Dosage: 5 MG, 1X/DAY
  2. TENORMIN [Concomitant]
     Indication: HYPERTENSION
     Dosage: 100 MG, 1X/DAY
  3. CHANTIX [Suspect]
     Indication: SMOKING CESSATION THERAPY
     Dosage: 1 MG, 2X/DAY
     Route: 048
     Dates: start: 20120516, end: 20120531
  4. TENORMIN [Concomitant]
     Indication: BLOOD CHOLESTEROL INCREASED
  5. VENTOLIN [Concomitant]
     Indication: ASTHMA
     Dosage: UNK
  6. ADVAIR DISKUS 100/50 [Concomitant]
     Indication: ASTHMA
     Dosage: UNK

REACTIONS (1)
  - MALAISE [None]
